FAERS Safety Report 10029202 (Version 1)
Quarter: 2014Q1

REPORT INFORMATION
  Report Type: Spontaneous
  Country: IR (occurrence: IR)
  Receive Date: 20140321
  Receipt Date: 20140321
  Transmission Date: 20141002
  Serious: Yes (Hospitalization)
  Sender: FDA-Public Use
  Company Number: PHHY2014IR031220

PATIENT
  Age: 27 Year
  Sex: Male

DRUGS (3)
  1. CLONIDINE [Suspect]
     Dosage: 20 DF, UNK
  2. CLONAZEPAM [Suspect]
     Dosage: 20 DF, UNK
  3. ALPRAZOLAM [Suspect]
     Dosage: 20 DF, UNK

REACTIONS (12)
  - Toxicity to various agents [Unknown]
  - Electrocardiogram QRS complex prolonged [Recovering/Resolving]
  - Electrocardiogram QT prolonged [Recovering/Resolving]
  - Electrocardiogram PR prolongation [Recovering/Resolving]
  - Respiratory acidosis [Recovering/Resolving]
  - Metabolic alkalosis [Recovering/Resolving]
  - Bradycardia [Recovering/Resolving]
  - Hallucinations, mixed [Recovering/Resolving]
  - Aggression [Recovering/Resolving]
  - Hypotension [Recovering/Resolving]
  - Agitation [Recovering/Resolving]
  - Loss of consciousness [Recovering/Resolving]
